FAERS Safety Report 4514778-X (Version None)
Quarter: 2004Q4

REPORT INFORMATION
  Report Type: 
  Country: None (occurrence: None)
  Receive Date: 20041124
  Receipt Date: 20041124
  Transmission Date: 20050328
  Serious: Yes (Life-Threatening, Hospitalization)
  Sender: FDA-Public Use
  Company Number: None

PATIENT
  Age: 3 Year
  Sex: Female
  Weight: 15 kg

DRUGS (7)
  1. DEXAMETHASONE [Suspect]
     Indication: ACUTE LYMPHOCYTIC LEUKAEMIA
     Dosage: 2MG PO BID
     Route: 048
     Dates: start: 20041027, end: 20041111
  2. ARA-C [Concomitant]
  3. METHOTREXATE [Concomitant]
  4. PEG-ASPARAGINASE [Concomitant]
  5. VINCRISTINE [Concomitant]
  6. SEPTRA [Concomitant]
  7. ZANTAC [Concomitant]

REACTIONS (5)
  - HYPOTENSION [None]
  - NEUTROPENIA [None]
  - PYREXIA [None]
  - RESPIRATORY FAILURE [None]
  - SEPTIC SHOCK [None]
